FAERS Safety Report 9712772 (Version 4)
Quarter: 2014Q1

REPORT INFORMATION
  Report Type: Spontaneous
  Country: US (occurrence: US)
  Receive Date: 20131126
  Receipt Date: 20140108
  Transmission Date: 20141002
  Serious: Yes (Hospitalization, Other)
  Sender: FDA-Public Use
  Company Number: US-SA-2013SA121448

PATIENT
  Age: 86 Year
  Sex: Male
  Weight: 60.78 kg

DRUGS (5)
  1. AVAPRO [Suspect]
     Indication: CARDIAC OPERATION
     Dosage: DAILY IN MORNING
     Route: 048
     Dates: start: 19980915, end: 20131108
  2. AVAPRO [Suspect]
     Indication: CARDIAC OPERATION
     Route: 065
     Dates: start: 20131114
  3. BACLOFEN [Concomitant]
     Indication: SKIN LESION
     Dosage: ALLY B.D
     Route: 065
     Dates: start: 200808
  4. EFUDEX [Concomitant]
     Indication: SKIN LESION
     Dosage: APPLY SCALP TWICE A DAY
     Route: 065
     Dates: start: 200808
  5. PROSTATE GLAND EXTRACT [Concomitant]
     Indication: PROSTATIC DISORDER
     Route: 065
     Dates: start: 201009

REACTIONS (6)
  - Gastrointestinal disorder [Not Recovered/Not Resolved]
  - Hernia [Not Recovered/Not Resolved]
  - Cardiac disorder [Not Recovered/Not Resolved]
  - Tachycardia [Not Recovered/Not Resolved]
  - Hypertension [Recovered/Resolved]
  - Drug dose omission [Unknown]
